APPROVED DRUG PRODUCT: PROPOFOL
Active Ingredient: PROPOFOL
Strength: 10MG/ML
Dosage Form/Route: INJECTABLE;INJECTION
Application: A205576 | Product #001 | TE Code: AB
Applicant: INNOPHARMA LICENSING LLC A SUB OF PFIZER INC
Approved: Sep 16, 2020 | RLD: No | RS: No | Type: RX